FAERS Safety Report 5898956-3 (Version None)
Quarter: 2008Q3

REPORT INFORMATION
  Report Type: 
  Country: None (occurrence: None)
  Receive Date: 20080925
  Receipt Date: 20080917
  Transmission Date: 20090109
  Serious: Yes (Hospitalization)
  Sender: FDA-Public Use
  Company Number: US-ELI_LILLY_AND_COMPANY-US200809004217

PATIENT
  Age: 61 Year
  Sex: Female

DRUGS (13)
  1. HUMALOG [Suspect]
  2. HUMALOG [Suspect]
  3. THEO-24 [Concomitant]
  4. EFFEXOR [Concomitant]
  5. POTASSIUM CHLORIDE [Concomitant]
  6. WATER PILLS [Concomitant]
  7. SINGULAIR [Concomitant]
  8. LANTUS [Concomitant]
  9. DARVOCET [Concomitant]
  10. COREG [Concomitant]
  11. ASPIRIN [Concomitant]
  12. PLAVIX [Concomitant]
  13. NOVOLOG [Concomitant]

REACTIONS (6)
  - ANXIETY [None]
  - BLOOD GLUCOSE INCREASED [None]
  - CARDIAC OPERATION [None]
  - DYSPNOEA [None]
  - RENAL DISORDER [None]
  - STRESS [None]
